FAERS Safety Report 6671698-2 (Version None)
Quarter: 2010Q2

REPORT INFORMATION
  Report Type: 
  Country: None (occurrence: None)
  Receive Date: 20100407
  Receipt Date: 20100401
  Transmission Date: 20101027
  Serious: Yes (Death)
  Sender: FDA-Public Use
  Company Number: PHHY2010AR20979

PATIENT
  Sex: Male

DRUGS (2)
  1. EXELON [Suspect]
     Dosage: 5 CM2, UNK
     Route: 062
  2. DIOVAN [Suspect]
     Indication: BLOOD PRESSURE INCREASED
     Dosage: 160 MG, UNK

REACTIONS (1)
  - CEREBRAL DISORDER [None]
